FAERS Safety Report 18222331 (Version 1)
Quarter: 2020Q3

REPORT INFORMATION
  Report Type: Spontaneous
  Country: US (occurrence: US)
  Receive Date: 20200902
  Receipt Date: 20200902
  Transmission Date: 20201103
  Serious: No
  Sender: FDA-Public Use
  Company Number: US-GLAXOSMITHKLINE-US2020173782

PATIENT
  Sex: Female

DRUGS (1)
  1. NUCALA [Suspect]
     Active Substance: MEPOLIZUMAB
     Indication: ASTHMA
     Dosage: 100 MG, CYC
     Route: 058
     Dates: start: 202006

REACTIONS (8)
  - Wrong technique in device usage process [Unknown]
  - Product dose omission issue [Unknown]
  - Product storage error [Unknown]
  - Exposure via skin contact [Unknown]
  - Injection site pain [Unknown]
  - Accidental exposure to product [Unknown]
  - Product complaint [Unknown]
  - Social problem [Unknown]
